APPROVED DRUG PRODUCT: TESTOSTERONE
Active Ingredient: TESTOSTERONE
Strength: 100MG/ML
Dosage Form/Route: INJECTABLE;INJECTION
Application: A086417 | Product #001
Applicant: DR REDDYS LABORATORIES LTD
Approved: Jul 7, 1983 | RLD: No | RS: No | Type: DISCN